FAERS Safety Report 6899608-3 (Version None)
Quarter: 2010Q3

REPORT INFORMATION
  Report Type: 
  Country: None (occurrence: None)
  Receive Date: 20100803
  Receipt Date: 20100723
  Transmission Date: 20110219
  Serious: Yes (Other)
  Sender: FDA-Public Use
  Company Number: PHHY2010US49041

PATIENT

DRUGS (1)
  1. AFINITOR [Suspect]
     Dosage: UNK
     Dates: start: 20100301

REACTIONS (2)
  - FACE OEDEMA [None]
  - LIP SWELLING [None]
